FAERS Safety Report 9933202 (Version 1)
Quarter: 2014Q1

REPORT INFORMATION
  Report Type: Report from Study
  Country: US (occurrence: US)
  Receive Date: 20140228
  Receipt Date: 20140228
  Transmission Date: 20141002
  Serious: No
  Sender: FDA-Public Use
  Company Number: US-ABBVIE-13P-163-1117735-00

PATIENT
  Age: 52 Year
  Sex: Male
  Weight: 98.97 kg

DRUGS (4)
  1. ANDROGEL [Suspect]
     Indication: BLOOD TESTOSTERONE DECREASED
     Dosage: 2.5 GRAM PACKETS
     Route: 061
     Dates: start: 201302, end: 201303
  2. ANDROGEL [Suspect]
     Dosage: 2.5 GRAM PACKETS
     Route: 061
     Dates: start: 201303, end: 201303
  3. LISINOPRIL/HYDROCHLOORTHIAZIDE [Concomitant]
     Indication: HYPERTENSION
  4. PRAVASTATIN [Concomitant]
     Indication: BLOOD CHOLESTEROL INCREASED

REACTIONS (2)
  - Sluggishness [Not Recovered/Not Resolved]
  - Blood testosterone decreased [Unknown]
